FAERS Safety Report 7803926-1 (Version None)
Quarter: 2011Q4

REPORT INFORMATION
  Report Type: 
  Country: None (occurrence: None)
  Receive Date: 20111010
  Receipt Date: 20111006
  Transmission Date: 20120403
  Serious: Yes (Other)
  Sender: FDA-Public Use
  Company Number: CA-PFIZER INC-2011239097

PATIENT
  Age: 34 Year
  Sex: Female

DRUGS (3)
  1. ESCITALOPRAM [Concomitant]
     Dosage: UNK
  2. ETHINYL ESTRADIOL AND NORETHINDRONE [Concomitant]
     Dosage: UNK
  3. VARENICLINE TARTRATE [Suspect]
     Dosage: UNK
     Dates: start: 20110922

REACTIONS (1)
  - OROPHARYNGEAL BLISTERING [None]
